FAERS Safety Report 6918790-2 (Version None)
Quarter: 2010Q3

REPORT INFORMATION
  Report Type: 
  Country: None (occurrence: None)
  Receive Date: 20100811
  Receipt Date: 20100729
  Transmission Date: 20110219
  Serious: No
  Sender: FDA-Public Use
  Company Number: US-B.I. PHARMACEUTICALS,INC./RIDGEFIELD-2010-BP-08683BP

PATIENT
  Sex: Female

DRUGS (5)
  1. SPIRIVA [Suspect]
     Indication: EMPHYSEMA
     Dosage: 18 MCG
     Route: 055
     Dates: start: 20100602, end: 20100728
  2. VICODIN [Concomitant]
     Indication: BACK DISORDER
     Route: 048
  3. OXYCONTIN [Concomitant]
     Indication: BACK DISORDER
     Dosage: 20 MG
     Route: 048
  4. TOPROL-XL [Concomitant]
     Indication: HYPERTENSION
     Route: 048
  5. LOTREL [Concomitant]
     Indication: HYPERTENSION
     Route: 048

REACTIONS (3)
  - DRY MOUTH [None]
  - DRY THROAT [None]
  - NASAL DRYNESS [None]
